FAERS Safety Report 15082239 (Version 2)
Quarter: 2018Q3

REPORT INFORMATION
  Report Type: Spontaneous
  Country: US (occurrence: US)
  Receive Date: 20180628
  Receipt Date: 20180709
  Transmission Date: 20181010
  Serious: Yes (Hospitalization, Other)
  Sender: FDA-Public Use
  Company Number: US-ASTRAZENECA-2018SE81876

PATIENT
  Age: 908 Month
  Sex: Female
  Weight: 64 kg

DRUGS (9)
  1. ARIMIDEX [Suspect]
     Active Substance: ANASTROZOLE
     Indication: BREAST CANCER FEMALE
     Route: 048
     Dates: start: 2014
  2. BUDESONIDE. [Suspect]
     Active Substance: BUDESONIDE
     Indication: CHRONIC OBSTRUCTIVE PULMONARY DISEASE
     Dosage: TWO TIMES A DAY
     Route: 055
     Dates: start: 2016
  3. NORVASC [Concomitant]
     Active Substance: AMLODIPINE BESYLATE
     Indication: HYPERTENSION
     Route: 048
     Dates: start: 1998
  4. XARELTO [Concomitant]
     Active Substance: RIVAROXABAN
     Route: 048
     Dates: start: 201606
  5. TUDORZA PRESSAIR [Suspect]
     Active Substance: ACLIDINIUM BROMIDE
     Indication: CHRONIC OBSTRUCTIVE PULMONARY DISEASE
     Dosage: 400UG/INHAL TWO TIMES A DAY
     Route: 055
     Dates: start: 20180618
  6. OXYGEN. [Concomitant]
     Active Substance: OXYGEN
     Indication: CHRONIC OBSTRUCTIVE PULMONARY DISEASE
     Dosage: 2.0L UNKNOWN
     Route: 045
     Dates: start: 2016
  7. NEBULIZER PERFORMIS [Concomitant]
     Indication: CHRONIC OBSTRUCTIVE PULMONARY DISEASE
     Dosage: TWO TIMES A DAY
     Route: 055
     Dates: start: 2016
  8. VENTOLIN HFA [Concomitant]
     Active Substance: ALBUTEROL SULFATE
     Indication: SUPPLEMENTATION THERAPY
     Route: 055
     Dates: start: 2016
  9. TUDORZA PRESSAIR [Suspect]
     Active Substance: ACLIDINIUM BROMIDE
     Indication: CHRONIC OBSTRUCTIVE PULMONARY DISEASE
     Dosage: 400 MCGS, ONE PUFF TWICE DAILY IN 2014?2015
     Route: 055

REACTIONS (7)
  - Intentional product misuse [Unknown]
  - Dyspnoea exertional [Unknown]
  - Breast cancer female [Unknown]
  - Chronic obstructive pulmonary disease [Unknown]
  - Loss of consciousness [Unknown]
  - Viral infection [Unknown]
  - Device malfunction [Unknown]

NARRATIVE: CASE EVENT DATE: 201403
